FAERS Safety Report 9728662 (Version 3)
Quarter: 2013Q4

REPORT INFORMATION
  Report Type: Spontaneous
  Country: US (occurrence: US)
  Receive Date: 20131204
  Receipt Date: 20131230
  Transmission Date: 20140711
  Serious: Yes (Death, Hospitalization)
  Sender: FDA-Public Use
  Company Number: US-PFIZER INC-2013343450

PATIENT
  Age: 53 Year
  Sex: Female

DRUGS (1)
  1. SUTENT [Suspect]
     Indication: RENAL CANCER
     Dosage: 50 MG, DAILY
     Route: 048
     Dates: start: 20131101

REACTIONS (10)
  - Death [Fatal]
  - Pain [Unknown]
  - Rash [Unknown]
  - Oral pain [Unknown]
  - Epistaxis [Unknown]
  - Lacrimal disorder [Unknown]
  - Stomatitis [Unknown]
  - Oral mucosal erythema [Unknown]
  - Chest pain [Unknown]
  - Constipation [Unknown]
